FAERS Safety Report 18761578 (Version 1)
Quarter: 2021Q1

REPORT INFORMATION
  Report Type: Spontaneous
  Country: US (occurrence: US)
  Receive Date: 20210120
  Receipt Date: 20210120
  Transmission Date: 20210419
  Serious: No
  Sender: FDA-Public Use
  Company Number: US-JNJFOC-20210115747

PATIENT
  Age: 70 Year
  Sex: Female
  Weight: 63.56 kg

DRUGS (1)
  1. MENS ROGAINE EXTRA STRENGTH [Suspect]
     Active Substance: MINOXIDIL
     Indication: ALOPECIA
     Dosage: ONE DROPPER TWICE DAILY.?PRODUCT WAS LAST USED ON 31?OCT?2020
     Route: 061
     Dates: start: 20201001

REACTIONS (3)
  - Intentional product misuse [Unknown]
  - Alopecia [Unknown]
  - Product use issue [Unknown]

NARRATIVE: CASE EVENT DATE: 20201001
